FAERS Safety Report 6057270-6 (Version None)
Quarter: 2009Q1

REPORT INFORMATION
  Report Type: 
  Country: None (occurrence: None)
  Receive Date: 20090129
  Receipt Date: 20080711
  Transmission Date: 20090719
  Serious: No
  Sender: FDA-Public Use
  Company Number: A0738273A

PATIENT
  Sex: Female

DRUGS (1)
  1. WELLBUTRIN [Suspect]

REACTIONS (1)
  - HEADACHE [None]
